FAERS Safety Report 9357563 (Version 3)
Quarter: 2013Q3

REPORT INFORMATION
  Report Type: Report from Study
  Country: US (occurrence: US)
  Receive Date: 20130620
  Receipt Date: 20130829
  Transmission Date: 20140515
  Serious: No
  Sender: FDA-Public Use
  Company Number: US-VERTEX PHARMACEUTICALS INC-2013-007247

PATIENT
  Age: 41 Year
  Sex: Male
  Weight: 107 kg

DRUGS (16)
  1. VX-950 (TELAPREVIR) [Suspect]
     Indication: HEPATITIS C
     Dosage: 375 MG, BID
     Route: 048
     Dates: start: 20130116, end: 20130416
  2. RIBAVIRIN [Suspect]
     Indication: HEPATITIS C
     Dosage: 200 MG, QD
     Route: 048
     Dates: start: 20130116
  3. PEGASYS [Suspect]
     Indication: HEPATITIS C
     Dosage: 180 ?G, QW
     Dates: start: 20130116
  4. ZOLOFT [Concomitant]
     Dosage: 100 MG, QD
  5. LAMICTAL [Concomitant]
     Dosage: 200 MG, QD
  6. PRILOSEC [Concomitant]
     Dosage: 20 MG, BID
  7. GABAPENTIN [Concomitant]
     Dosage: 100 MG, TID
  8. AMBIEN [Concomitant]
     Dosage: 10 MG, PRN
     Route: 048
  9. BENTYL [Concomitant]
     Dosage: 10 MG, BID
  10. NIACIN [Concomitant]
     Dosage: 500 MG, QD
  11. FISH OIL [Concomitant]
     Dosage: 1200 MG, QD
  12. VITAMIN E [Concomitant]
     Dosage: 400 IU, QD
  13. ASPIRIN [Concomitant]
     Dosage: 81 MG, QD
  14. ACIDOPHILUS [Concomitant]
     Dosage: UNK, QD
  15. GAS RELIEF [Concomitant]
     Dosage: UNK, PRN
  16. VITAMIN C [Concomitant]
     Dosage: 500 MG, QD

REACTIONS (5)
  - Headache [Not Recovered/Not Resolved]
  - Decreased appetite [Not Recovered/Not Resolved]
  - Dysgeusia [Not Recovered/Not Resolved]
  - Nausea [Recovered/Resolved]
  - Vomiting [Recovered/Resolved]
